FAERS Safety Report 11205274 (Version 1)
Quarter: 2015Q2

REPORT INFORMATION
  Report Type: Spontaneous
  Country: US (occurrence: None)
  Receive Date: 20150618
  Receipt Date: 20150618
  Transmission Date: 20150821
  Serious: Yes (Hospitalization)
  Sender: FDA-Public Use
  Company Number: None

PATIENT
  Age: 66 Year
  Sex: Male
  Weight: 118.4 kg

DRUGS (1)
  1. IOHEXOL [Suspect]
     Active Substance: IOHEXOL
     Route: 042
     Dates: start: 20150312, end: 20150312

REACTIONS (2)
  - Contrast media allergy [None]
  - Anaphylactic reaction [None]

NARRATIVE: CASE EVENT DATE: 20150313
